FAERS Safety Report 21727661 (Version 2)
Quarter: 2022Q4

REPORT INFORMATION
  Report Type: Spontaneous
  Country: PL (occurrence: PL)
  Receive Date: 20221214
  Receipt Date: 20221221
  Transmission Date: 20230112
  Serious: Yes (Other)
  Sender: FDA-Public Use
  Company Number: PL-002147023-NVSC2022PL275827

PATIENT
  Age: 10 Year
  Sex: Male

DRUGS (2)
  1. SUNITINIB MALATE [Suspect]
     Active Substance: SUNITINIB MALATE
     Indication: Clear cell renal cell carcinoma
     Dosage: 25 MG/M2 (ESCALATED FOR 3RD TO THE 8TH COURSE)
     Route: 065
  2. SUNITINIB MALATE [Suspect]
     Active Substance: SUNITINIB MALATE
     Dosage: 15 MG/M2, BSA (FOR FIRST 2 COURSES). FOR 28 DAYS FOLLOWED BY A 14 DAY BREAK.RECIEVED 2 COURSES
     Route: 065
     Dates: start: 202002

REACTIONS (3)
  - Hypothyroidism [Unknown]
  - Hair colour changes [Unknown]
  - Off label use [Unknown]
